FAERS Safety Report 4749161-5 (Version None)
Quarter: 2005Q3

REPORT INFORMATION
  Report Type: 
  Country: None (occurrence: None)
  Receive Date: 20050817
  Receipt Date: 20050804
  Transmission Date: 20060218
  Serious: Yes (Death)
  Sender: FDA-Public Use
  Company Number: 2005FR-00217

PATIENT
  Sex: Male

DRUGS (11)
  1. ACETAMINOPHEN [Suspect]
  2. ALLOPURINOL [Concomitant]
  3. PERINDOPRIL [Concomitant]
  4. SPIRIVA [Concomitant]
  5. FUROSEMIDE [Concomitant]
  6. PANTOPRAZPLE [Concomitant]
  7. SIMVASTATIN [Concomitant]
  8. WARFARIN [Concomitant]
  9. BECLOMETHASONE DIPROPIONATE [Concomitant]
  10. VENTOLIN [Concomitant]
  11. DIGOXIN [Concomitant]

REACTIONS (1)
  - AORTIC DISSECTION [None]
